FAERS Safety Report 20213986 (Version 2)
Quarter: 2022Q1

REPORT INFORMATION
  Report Type: Spontaneous
  Country: BE (occurrence: BE)
  Receive Date: 20211221
  Receipt Date: 20220117
  Transmission Date: 20220424
  Serious: Yes (Other)
  Sender: FDA-Public Use
  Company Number: BE-BAYER-2021A255613

PATIENT
  Age: 66 Year
  Sex: Male

DRUGS (1)
  1. XARELTO [Suspect]
     Active Substance: RIVAROXABAN
     Indication: Deep vein thrombosis
     Dosage: 20 MG, QD
     Route: 048
     Dates: end: 20200918

REACTIONS (5)
  - Deep vein thrombosis [Recovered/Resolved]
  - General physical health deterioration [Unknown]
  - Chest pain [Unknown]
  - Asthenia [Unknown]
  - Drug ineffective [Unknown]
